FAERS Safety Report 5273610-X (Version None)
Quarter: 2007Q1

REPORT INFORMATION
  Report Type: 
  Country: None (occurrence: None)
  Receive Date: 20070323
  Receipt Date: 20070320
  Transmission Date: 20070707
  Serious: Yes (Death, Hospitalization)
  Sender: FDA-Public Use
  Company Number: PHBS2007JP05038

PATIENT
  Age: 84 Year
  Sex: Female

DRUGS (1)
  1. DIOVAN [Suspect]

REACTIONS (5)
  - CARDIAC FAILURE [None]
  - DRUG LEVEL INCREASED [None]
  - PNEUMONIA [None]
  - RENAL IMPAIRMENT [None]
  - TORSADE DE POINTES [None]
